FAERS Safety Report 8620289-2 (Version None)
Quarter: 2012Q3

REPORT INFORMATION
  Report Type: 
  Country: None (occurrence: None)
  Receive Date: 20120816
  Receipt Date: 20120816
  Transmission Date: 20120928
  Serious: Yes (Death, Hospitalization)
  Sender: FDA-Public Use
  Company Number: None

PATIENT
  Sex: Male
  Weight: 84.4 kg

DRUGS (2)
  1. IRINOTECAN HCL [Suspect]
  2. TEMOZOLOMIDE [Suspect]

REACTIONS (7)
  - THROMBOCYTOPENIA [None]
  - HYPERBILIRUBINAEMIA [None]
  - ALANINE AMINOTRANSFERASE INCREASED [None]
  - NEUTROPENIA [None]
  - MULTI-ORGAN FAILURE [None]
  - ASPARTATE AMINOTRANSFERASE INCREASED [None]
  - STREPTOCOCCAL SEPSIS [None]
